FAERS Safety Report 21018399 (Version 1)
Quarter: 2022Q2

REPORT INFORMATION
  Report Type: Spontaneous
  Country: JP (occurrence: JP)
  Receive Date: 20220628
  Receipt Date: 20220628
  Transmission Date: 20220720
  Serious: Yes (Other)
  Sender: FDA-Public Use
  Company Number: JP-TEVA-2022-JP-2049754

PATIENT
  Age: 74 Year
  Sex: Female

DRUGS (10)
  1. IRINOTECAN [Suspect]
     Active Substance: IRINOTECAN
     Indication: Cystadenocarcinoma pancreas
     Dosage: MODIFIED FOLFIRINOX REGIMEN
     Route: 065
  2. IRINOTECAN [Suspect]
     Active Substance: IRINOTECAN
     Dosage: REDUCED TO 80% OF INITIAL DOSE
     Route: 065
  3. GEMCITABINE [Suspect]
     Active Substance: GEMCITABINE
     Indication: Cystadenocarcinoma pancreas
     Dosage: ON DAY 1, 8, AND 15 EVERY 4 WEEKS.
     Route: 065
  4. GEMCITABINE [Suspect]
     Active Substance: GEMCITABINE
     Dosage: ON DAY 1, 8, AND 15 REPEATED EVERY 4 WEEKS; WITH PACLITAXEL
     Route: 065
  5. TS-1 [Suspect]
     Active Substance: GIMERACIL\OTERACIL\TEGAFUR
     Indication: Cystadenocarcinoma pancreas
     Dosage: 100 MILLIGRAM DAILY; FOR TWO WEEKS FOLLOWED BY A 1 WEEK WASHOUT PERIOD
     Route: 048
  6. PACLITAXEL [Suspect]
     Active Substance: PACLITAXEL
     Indication: Cystadenocarcinoma pancreas
     Dosage: ON DAY 1, 8, AND 15 REPEATED EVERY 4 WEEKS.
     Route: 065
  7. OXALIPLATIN [Suspect]
     Active Substance: OXALIPLATIN
     Indication: Cystadenocarcinoma pancreas
     Dosage: MODIFIED FOLFIRINOX REGIMEN
     Route: 065
  8. OXALIPLATIN [Suspect]
     Active Substance: OXALIPLATIN
     Dosage: REDUCED TO 80% OF INITIAL DOSE
     Route: 065
  9. LEUCOVORIN [Suspect]
     Active Substance: LEUCOVORIN
     Indication: Cystadenocarcinoma pancreas
     Dosage: MODIFIED FOLFIRINOX REGIMEN
     Route: 065
  10. FLUOROURACIL [Suspect]
     Active Substance: FLUOROURACIL
     Indication: Cystadenocarcinoma pancreas
     Dosage: CONTINUOUS INFUSION OVER 46HOURS; MODIFIED FOLFIRINOX REGIMEN
     Route: 050

REACTIONS (6)
  - Drug ineffective [Unknown]
  - Neutropenia [Unknown]
  - Cardiac failure [Unknown]
  - Fatigue [Unknown]
  - Peripheral sensory neuropathy [Unknown]
  - Herpes zoster [Unknown]
